FAERS Safety Report 7221461-9 (Version None)
Quarter: 2010Q4

REPORT INFORMATION
  Report Type: 
  Country: None (occurrence: None)
  Receive Date: 20101230
  Receipt Date: 20101221
  Transmission Date: 20110411
  Serious: Yes (Congenital Anomaly, Other)
  Sender: FDA-Public Use
  Company Number: 1000012796

PATIENT
  Sex: Male
  Weight: 3.1434 kg

DRUGS (8)
  1. LEXAPRO [Suspect]
     Dosage: TRANSPLACENTAL
     Route: 064
  2. PROVIGIL (MODAFTNIL)(TABLETS) [Suspect]
     Dosage: 200 MG (200 MG, 1 IN 1 D),TRANSPLACENTAL
     Route: 064
     Dates: start: 20080101
  3. LEVOTHYROXINE (LEVOTHYROXINE SODIUM)(LEVOTHYROXINE SODIUM) [Concomitant]
  4. METFORMIN HCL [Concomitant]
  5. BUSPAR (BUSPIRONE HYDROCHLORIDE)(BUSPIRONE HYDROCHLORIDE) [Concomitant]
  6. NASONEX (MOMETASONE FUROATE) (MOMETASONE FUROATE) [Concomitant]
  7. OB NATAL (OB NATAL) (OB NATAL) [Concomitant]
  8. XYREM (OXYBATE SODIUM) (OXYBATE SODIUM) [Concomitant]

REACTIONS (6)
  - APGAR SCORE ABNORMAL [None]
  - CARDIAC MURMUR [None]
  - MATERNAL DRUGS AFFECTING FOETUS [None]
  - PREMATURE BABY [None]
  - TRANSPOSITION OF THE GREAT VESSELS [None]
  - VENTRICULAR SEPTAL DEFECT [None]
